FAERS Safety Report 5472459-2 (Version None)
Quarter: 2007Q3

REPORT INFORMATION
  Report Type: 
  Country: None (occurrence: None)
  Receive Date: 20070926
  Receipt Date: 20070911
  Transmission Date: 20080115
  Serious: Yes (Other)
  Sender: FDA-Public Use
  Company Number: DSJ-2007-04937

PATIENT
  Age: 57 Year
  Sex: Female
  Weight: 53 kg

DRUGS (4)
  1. OLMESARTAN MEDOXOMIL [Suspect]
     Indication: HYPERTENSION
     Dosage: 20 MG (20 MG, 1 IN 1 D), PER ORAL
     Route: 048
     Dates: start: 20040703, end: 20070615
  2. NATRIX (INDAPAMIDE) [Concomitant]
  3. DOXAZOSIN MESYLATE [Concomitant]
  4. VITAMEDIN [Concomitant]

REACTIONS (11)
  - CARDIOMEGALY [None]
  - CELL MARKER INCREASED [None]
  - DIZZINESS [None]
  - EMPYEMA [None]
  - HYPOTENSION [None]
  - INTERSTITIAL LUNG DISEASE [None]
  - NASOPHARYNGITIS [None]
  - PLEURAL EFFUSION [None]
  - PRURITUS [None]
  - SINUSITIS [None]
  - SPUTUM DISCOLOURED [None]
